FAERS Safety Report 10836616 (Version 2)
Quarter: 2015Q1

REPORT INFORMATION
  Report Type: Other
  Country: IT (occurrence: IT)
  Receive Date: 20150219
  Receipt Date: 20150316
  Transmission Date: 20150721
  Serious: Yes (Hospitalization)
  Sender: FDA-Public Use
  Company Number: IT-MYLANLABS-2015M1004179

PATIENT

DRUGS (3)
  1. FORSTEO [Suspect]
     Active Substance: TERIPARATIDE
     Indication: OSTEOPOROSIS
     Dosage: 20 ?G, QD
     Route: 058
     Dates: start: 20110901, end: 20140201
  2. CIMZIA [Suspect]
     Active Substance: CERTOLIZUMAB PEGOL
     Indication: RHEUMATOID ARTHRITIS
     Dosage: 200 MG, CYCLE
     Route: 058
     Dates: start: 20010901, end: 20141130
  3. METHOTREXATE [Suspect]
     Active Substance: METHOTREXATE
     Indication: RHEUMATOID ARTHRITIS
     Dosage: 7.5 MG, QW
     Route: 058
     Dates: start: 19950101, end: 20141101

REACTIONS (1)
  - Lung adenocarcinoma [Unknown]

NARRATIVE: CASE EVENT DATE: 20141130
